FAERS Safety Report 9836740 (Version 2)
Quarter: 2014Q1

REPORT INFORMATION
  Report Type: Spontaneous
  Country: GB (occurrence: GB)
  Receive Date: 20140123
  Receipt Date: 20140204
  Transmission Date: 20141002
  Serious: Yes (Other)
  Sender: FDA-Public Use
  Company Number: PHFR2014GB000807

PATIENT
  Age: 42 Year
  Sex: Male

DRUGS (4)
  1. CLOZARIL [Suspect]
     Indication: SCHIZOPHRENIA
     Dosage: 250 MG, DAILY
     Route: 048
     Dates: start: 20010701
  2. CLOZARIL [Suspect]
     Dosage: 150 MG, DAILY
     Route: 048
  3. LITHIUM [Concomitant]
     Indication: SCHIZOPHRENIA
     Dosage: 1200 MG, DAILY
     Route: 048
     Dates: start: 2010
  4. LITHIUM [Concomitant]
     Dosage: 800 MG, DAILY
     Route: 048

REACTIONS (3)
  - Alanine aminotransferase increased [Recovered/Resolved]
  - Gamma-glutamyltransferase increased [Recovering/Resolving]
  - Blood alkaline phosphatase increased [Recovering/Resolving]
